FAERS Safety Report 21501261 (Version 8)
Quarter: 2024Q3

REPORT INFORMATION
  Report Type: Spontaneous
  Country: US (occurrence: US)
  Receive Date: 20221025
  Receipt Date: 20240723
  Transmission Date: 20241017
  Serious: Yes (Other)
  Sender: PFIZER
  Company Number: US-PFIZER INC-202200714053

PATIENT
  Age: 72 Year
  Sex: Female
  Weight: 87.4 kg

DRUGS (1)
  1. PREMARIN [Suspect]
     Active Substance: ESTROGENS, CONJUGATED
     Dosage: UNK (0.625 MG/30 GM 1 PACKAGE FOR 90 DAYS)
     Route: 067

REACTIONS (2)
  - Mental impairment [Unknown]
  - Product prescribing error [Unknown]
